FAERS Safety Report 24722856 (Version 1)
Quarter: 2024Q4

REPORT INFORMATION
  Report Type: Spontaneous
  Country: CZ (occurrence: CZ)
  Receive Date: 20241211
  Receipt Date: 20241211
  Transmission Date: 20250115
  Serious: Yes (Death, Hospitalization, Other)
  Sender: SANDOZ
  Company Number: CZ-SZ09-PHHY2015CZ057442

PATIENT
  Age: 44 Year
  Sex: Male

DRUGS (4)
  1. MYCOPHENOLATE MOFETIL [Suspect]
     Active Substance: MYCOPHENOLATE MOFETIL
     Indication: Liver transplant
     Dosage: UNKNOWN/D
     Route: 065
  2. SIROLIMUS [Suspect]
     Active Substance: SIROLIMUS
     Indication: Liver transplant
     Dosage: UNKNOWN/D
     Route: 065
  3. TACROLIMUS [Suspect]
     Active Substance: TACROLIMUS
     Indication: Liver transplant
     Dosage: UNKNOWN/D
     Route: 065
  4. TACROLIMUS [Suspect]
     Active Substance: TACROLIMUS
     Indication: Immunosuppression

REACTIONS (15)
  - Fungal sepsis [Fatal]
  - Infection [Fatal]
  - Brain abscess [Fatal]
  - Hemiparesis [Fatal]
  - Epilepsy [Unknown]
  - Cerebral fungal infection [Unknown]
  - Pneumonia fungal [Unknown]
  - Hemiparesis [Unknown]
  - Lung abscess [Unknown]
  - Decreased appetite [Unknown]
  - Cough [Unknown]
  - Diarrhoea [Unknown]
  - Pyrexia [Unknown]
  - Weight decreased [Unknown]
  - Diabetes mellitus [Unknown]
